FAERS Safety Report 25269841 (Version 2)
Quarter: 2025Q3

REPORT INFORMATION
  Report Type: Spontaneous
  Country: US (occurrence: US)
  Receive Date: 20250505
  Receipt Date: 20250703
  Transmission Date: 20251020
  Serious: Yes (Hospitalization, Other)
  Sender: BAYER HEALTHCARE PHARMACEUTICALS INC.
  Company Number: US-BAYER-2025A056632

PATIENT
  Age: 22 Month
  Sex: Male

DRUGS (19)
  1. ADEMPAS [Suspect]
     Active Substance: RIOCIGUAT
     Indication: Pulmonary arterial hypertension
     Dosage: 0.5 MG, TID
     Route: 048
     Dates: start: 20240328
  2. LANSOPRAZOLE [Concomitant]
     Active Substance: LANSOPRAZOLE
  3. ERYTHROMYCIN [Concomitant]
     Active Substance: ERYTHROMYCIN
  4. LEVOTHYROXINE [Concomitant]
     Active Substance: LEVOTHYROXINE
  5. AMBRISENTAN [Concomitant]
     Active Substance: AMBRISENTAN
  6. FERROUS SULFATE [Concomitant]
     Active Substance: FERROUS SULFATE
  7. FUROSEMIDE [Concomitant]
     Active Substance: FUROSEMIDE
  8. ASPIRIN [Concomitant]
     Active Substance: ASPIRIN
  9. PULMICORT TURBUHALER [Concomitant]
     Active Substance: BUDESONIDE
  10. XOPENEX [Concomitant]
     Active Substance: LEVALBUTEROL HYDROCHLORIDE
  11. DIPHENHYDRAMINE [Concomitant]
     Active Substance: DIPHENHYDRAMINE
  12. CETIRIZINE [Concomitant]
     Active Substance: CETIRIZINE HYDROCHLORIDE
  13. PREDNISOLONE [Concomitant]
     Active Substance: PREDNISOLONE
  14. SEPTRA [Concomitant]
     Active Substance: SULFAMETHOXAZOLE\TRIMETHOPRIM
  15. FAMOTIDINE [Concomitant]
     Active Substance: FAMOTIDINE
  16. OXYCODONE [Concomitant]
     Active Substance: OXYCODONE
  17. Polyvisol [Concomitant]
  18. MONTELUKAST [Concomitant]
     Active Substance: MONTELUKAST
  19. FLONASE [Concomitant]
     Active Substance: FLUTICASONE PROPIONATE

REACTIONS (5)
  - Respiratory failure [None]
  - Tracheitis [None]
  - Pneumonia aspiration [None]
  - Respiratory distress [Recovering/Resolving]
  - Product use issue [None]

NARRATIVE: CASE EVENT DATE: 20250416
